FAERS Safety Report 14347086 (Version 1)
Quarter: 2018Q1

REPORT INFORMATION
  Report Type: Spontaneous
  Country: US (occurrence: US)
  Receive Date: 20180101
  Receipt Date: 20180101
  Transmission Date: 20180509
  Serious: No
  Sender: FDA-Public Use
  Company Number: None

PATIENT
  Age: 62 Year
  Sex: Male
  Weight: 76.5 kg

DRUGS (2)
  1. VIAGRA [Concomitant]
     Active Substance: SILDENAFIL CITRATE
  2. CIPROFLOXACN [Suspect]
     Active Substance: CIPROFLOXACIN
     Indication: BACTERIAL INFECTION
     Dosage: ?          QUANTITY:28 TABLET(S);?
     Route: 048
     Dates: start: 20171220, end: 20171222

REACTIONS (17)
  - Arthropathy [None]
  - Hypoaesthesia [None]
  - Weight bearing difficulty [None]
  - Vision blurred [None]
  - Confusional state [None]
  - Nervous system disorder [None]
  - Asthenia [None]
  - Impaired work ability [None]
  - Anxiety [None]
  - Musculoskeletal disorder [None]
  - Paraesthesia [None]
  - Burning sensation [None]
  - Restlessness [None]
  - Heart rate irregular [None]
  - Insomnia [None]
  - Hypertension [None]
  - Pain [None]

NARRATIVE: CASE EVENT DATE: 20171220
